FAERS Safety Report 11231496 (Version 1)
Quarter: 2015Q2

REPORT INFORMATION
  Report Type: Spontaneous
  Country: US (occurrence: None)
  Receive Date: 20150629
  Receipt Date: 20150629
  Transmission Date: 20150821
  Serious: No
  Sender: FDA-Public Use
  Company Number: None

PATIENT
  Age: 33 Year
  Sex: Male
  Weight: 72.58 kg

DRUGS (2)
  1. MULTIHANCE [Suspect]
     Active Substance: GADOBENATE DIMEGLUMINE
     Indication: IMAGING PROCEDURE
     Dosage: 15 CC  SINGLE DOSE  INTO A VEIN
     Route: 042
  2. MULTIHANCE [Suspect]
     Active Substance: GADOBENATE DIMEGLUMINE
     Indication: NUCLEAR MAGNETIC RESONANCE IMAGING
     Dosage: 15 CC  SINGLE DOSE  INTO A VEIN
     Route: 042

REACTIONS (5)
  - Paraesthesia [None]
  - Arthralgia [None]
  - Body temperature decreased [None]
  - Drug screen positive [None]
  - Drug level increased [None]

NARRATIVE: CASE EVENT DATE: 20150515
